FAERS Safety Report 18681284 (Version 1)
Quarter: 2020Q4

REPORT INFORMATION
  Report Type: Other
  Country: PL (occurrence: PL)
  Receive Date: 20201230
  Receipt Date: 20201230
  Transmission Date: 20210114
  Serious: Yes (Other)
  Sender: FDA-Public Use
  Company Number: PL-ROCHE-2739134

PATIENT
  Sex: Female

DRUGS (1)
  1. MYCOPHENOLATE MOFETIL. [Suspect]
     Active Substance: MYCOPHENOLATE MOFETIL
     Indication: IMMUNOSUPPRESSANT DRUG THERAPY
     Route: 065

REACTIONS (3)
  - Contraindicated product administered [Unknown]
  - Maternal exposure during pregnancy [Unknown]
  - Foetal death [Unknown]
